FAERS Safety Report 16441253 (Version 1)
Quarter: 2019Q2

REPORT INFORMATION
  Report Type: Report from Study
  Country: US (occurrence: US)
  Receive Date: 20190617
  Receipt Date: 20190617
  Transmission Date: 20190711
  Serious: Yes (Death, Other)
  Sender: FDA-Public Use
  Company Number: US-ASTRAZENECA-2018SF63830

PATIENT
  Age: 894 Month
  Sex: Male
  Weight: 98.8 kg

DRUGS (16)
  1. ELIQUIS [Concomitant]
     Active Substance: APIXABAN
     Dosage: TWO TIMES A DAY
  2. AMLODIPINE [Concomitant]
     Active Substance: AMLODIPINE BESYLATE
  3. ACALABRUTINIB. [Suspect]
     Active Substance: ACALABRUTINIB
     Indication: MANTLE CELL LYMPHOMA
     Route: 048
     Dates: start: 20181128
  4. ACYCLOVIR. [Concomitant]
     Active Substance: ACYCLOVIR
  5. METOPROLOL. [Suspect]
     Active Substance: METOPROLOL
     Route: 048
  6. ATIVAN [Concomitant]
     Active Substance: LORAZEPAM
  7. ATORVASTATIN [Concomitant]
     Active Substance: ATORVASTATIN
     Dosage: DAILY
  8. ANTIOXIDANTS NOS [Concomitant]
     Dosage: TWO TIMES A DAY
  9. METFORMIN HYDROCHLORIDE. [Concomitant]
     Active Substance: METFORMIN HYDROCHLORIDE
  10. MULTIVITAMINS AND MINERAL FORMULA [Concomitant]
     Dosage: TWO TIMES A DAY
  11. CHLORPHENIRAMINE MALEATE. [Concomitant]
     Active Substance: CHLORPHENIRAMINE MALEATE
     Dosage: TWO TIMES A DAY
  12. LISINOPRIL. [Suspect]
     Active Substance: LISINOPRIL
     Route: 048
  13. FLOMAX [Concomitant]
     Active Substance: TAMSULOSIN HYDROCHLORIDE
     Dosage: DAILY
  14. METOPROLOL SUCCINATE. [Concomitant]
     Active Substance: METOPROLOL SUCCINATE
  15. LANTUS [Concomitant]
     Active Substance: INSULIN GLARGINE
     Dosage: 25 UNITS DAILY
  16. MAGNESIUM OXIDE. [Concomitant]
     Active Substance: MAGNESIUM OXIDE
     Dosage: TWO TIMES A DAY

REACTIONS (3)
  - Blood urine present [Recovered/Resolved]
  - Atrial fibrillation [Recovered/Resolved]
  - Death [Fatal]

NARRATIVE: CASE EVENT DATE: 201812
